FAERS Safety Report 25590504 (Version 3)
Quarter: 2025Q4

REPORT INFORMATION
  Report Type: Spontaneous
  Country: US (occurrence: US)
  Receive Date: 20250722
  Receipt Date: 20251014
  Transmission Date: 20260118
  Serious: Yes (Hospitalization, Other)
  Sender: BAYER HEALTHCARE PHARMACEUTICALS INC.
  Company Number: US-BAYER-2025A096940

PATIENT
  Age: 20 Year
  Sex: Male

DRUGS (6)
  1. KOVALTRY [Suspect]
     Active Substance: ANTIHEMOPHILIC FACTOR, HUMAN RECOMBINANT
     Indication: Factor VIII deficiency
     Dosage: KOVALTRY 1000 UNITS/ INFUSE 3400 IU, TIW
     Route: 042
     Dates: start: 202007
  2. KOVALTRY [Suspect]
     Active Substance: ANTIHEMOPHILIC FACTOR, HUMAN RECOMBINANT
     Indication: Factor VIII deficiency
     Dosage: KOVALTRY 2000 UNITS/ INFUSE 3400 IU, TIW
     Route: 042
     Dates: start: 202007
  3. KOVALTRY [Suspect]
     Active Substance: ANTIHEMOPHILIC FACTOR, HUMAN RECOMBINANT
     Indication: Factor VIII deficiency
     Dosage: KOVALTRY 500 UNITS/ INFUSE 3400 IU, TIW
     Route: 042
     Dates: start: 202007
  4. KOVALTRY [Suspect]
     Active Substance: ANTIHEMOPHILIC FACTOR, HUMAN RECOMBINANT
     Indication: Factor VIII deficiency
     Dosage: 1 DF
     Dates: start: 20250716, end: 20250716
  5. KOVALTRY [Suspect]
     Active Substance: ANTIHEMOPHILIC FACTOR, HUMAN RECOMBINANT
     Indication: Factor VIII deficiency
     Dosage: 1 DF
     Dates: start: 20250717, end: 20250717
  6. KOVALTRY [Suspect]
     Active Substance: ANTIHEMOPHILIC FACTOR, HUMAN RECOMBINANT
     Indication: Factor VIII deficiency
     Dosage: KOVALTRY 3000 UNITS/ INFUSE 3400 IU, TIW
     Route: 042
     Dates: start: 202107

REACTIONS (4)
  - Haemorrhage [None]
  - Colectomy [None]
  - Post procedural haemorrhage [Not Recovered/Not Resolved]
  - Poor venous access [None]

NARRATIVE: CASE EVENT DATE: 20250715
